FAERS Safety Report 5358199-9 (Version None)
Quarter: 2007Q2

REPORT INFORMATION
  Report Type: 
  Country: None (occurrence: None)
  Receive Date: 20070530
  Receipt Date: 20060929
  Transmission Date: 20071010
  Serious: Yes (Hospitalization, Other)
  Sender: FDA-Public Use
  Company Number: US200605002114

PATIENT
  Age: 50 Year
  Sex: Female
  Weight: 59 kg

DRUGS (3)
  1. ZYPREXA [Suspect]
     Indication: DEPRESSION
     Dosage: SEE IMAGE
     Dates: start: 20001201, end: 20020601
  2. SEROQUEL /UNK/ (QUETIAPINE FUMARATE) [Concomitant]
  3. SERZONE [Concomitant]

REACTIONS (3)
  - COMA [None]
  - DIABETES MELLITUS [None]
  - HYPERGLYCAEMIA [None]
